FAERS Safety Report 7018000-4 (Version None)
Quarter: 2010Q3

REPORT INFORMATION
  Report Type: 
  Country: None (occurrence: None)
  Receive Date: 20100927
  Receipt Date: 20100927
  Transmission Date: 20110219
  Serious: Yes (Life-Threatening, Other)
  Sender: FDA-Public Use
  Company Number: None

PATIENT
  Age: 26 Year
  Sex: Male
  Weight: 89.3586 kg

DRUGS (1)
  1. INVEGA [Suspect]
     Dates: start: 20100201, end: 20100301

REACTIONS (9)
  - ABNORMAL BEHAVIOUR [None]
  - EXTRAPYRAMIDAL DISORDER [None]
  - FREEZING PHENOMENON [None]
  - HOT FLUSH [None]
  - LOSS OF CONTROL OF LEGS [None]
  - MUSCLE DISORDER [None]
  - OVERDOSE [None]
  - PAIN [None]
  - TREMOR [None]
